FAERS Safety Report 14479502 (Version 2)
Quarter: 2018Q1

REPORT INFORMATION
  Report Type: Spontaneous
  Country: US (occurrence: US)
  Receive Date: 20180202
  Receipt Date: 20180328
  Transmission Date: 20180509
  Serious: No
  Sender: FDA-Public Use
  Company Number: US-PFIZER INC-2018047407

PATIENT
  Sex: Female

DRUGS (1)
  1. METHOTREXATE SODIUM. [Suspect]
     Active Substance: METHOTREXATE SODIUM
     Dosage: UNK, WEEKLY (DOSE WAS UPTO 20MG/ WK)
     Dates: start: 2003, end: 2013

REACTIONS (3)
  - Drug hypersensitivity [Unknown]
  - Blister [Unknown]
  - Tongue blistering [Unknown]
